FAERS Safety Report 11121386 (Version 1)
Quarter: 2015Q2

REPORT INFORMATION
  Report Type: Report from Study
  Country: VE (occurrence: VE)
  Receive Date: 20150519
  Receipt Date: 20150519
  Transmission Date: 20150821
  Serious: Yes (Disabling)
  Sender: FDA-Public Use
  Company Number: PHHY2015VE055882

PATIENT
  Sex: Female

DRUGS (4)
  1. EUTIROX [Concomitant]
     Active Substance: LEVOTHYROXINE SODIUM
     Indication: THYROID DISORDER
     Dosage: 125 MG, QD
     Route: 065
  2. BENICAR HCT [Concomitant]
     Active Substance: HYDROCHLOROTHIAZIDE\OLMESARTAN MEDOXOMIL
     Indication: BLOOD PRESSURE ABNORMAL
     Dosage: 20 MG, QD
     Route: 065
  3. ARTRODAR [Concomitant]
     Active Substance: DIACEREIN
     Indication: ARTHRITIS
     Dosage: 50 MG, QD
     Route: 065
  4. ACLASTA [Suspect]
     Active Substance: ZOLEDRONIC ACID
     Indication: OSTEOPOROSIS
     Dosage: 5 MG, ANNUALLY
     Route: 042
     Dates: start: 20120713

REACTIONS (8)
  - Arthralgia [Recovered/Resolved]
  - Malaise [Recovered/Resolved]
  - Deafness [Unknown]
  - Hearing impaired [Recovered/Resolved]
  - Arthropathy [Recovered/Resolved]
  - Gait disturbance [Recovered/Resolved]
  - Spinal pain [Recovered/Resolved]
  - Pain [Recovered/Resolved]
